FAERS Safety Report 9688782 (Version 2)
Quarter: 2013Q4

REPORT INFORMATION
  Report Type: Spontaneous
  Country: AU (occurrence: AU)
  Receive Date: 20131114
  Receipt Date: 20131114
  Transmission Date: 20140711
  Serious: Yes (Other)
  Sender: FDA-Public Use
  Company Number: AU-ELI_LILLY_AND_COMPANY-AU201310009097

PATIENT
  Sex: Male

DRUGS (1)
  1. AXIRON [Suspect]
     Indication: PRODUCT USED FOR UNKNOWN INDICATION
     Dosage: UNK, UNKNOWN
     Route: 065
     Dates: start: 20130424, end: 201310

REACTIONS (9)
  - Thrombosis [Unknown]
  - Sweat gland disorder [Unknown]
  - Diplopia [Unknown]
  - Arthritis [Unknown]
  - Erectile dysfunction [Unknown]
  - Grief reaction [Unknown]
  - Hot flush [Unknown]
  - Myalgia [Unknown]
  - Drug ineffective [Unknown]
